FAERS Safety Report 9738721 (Version 1)
Quarter: 2013Q4

REPORT INFORMATION
  Report Type: Spontaneous
  Country: US (occurrence: US)
  Receive Date: 20131209
  Receipt Date: 20131209
  Transmission Date: 20140711
  Serious: No
  Sender: FDA-Public Use
  Company Number: US-009507513-1312USA003572

PATIENT
  Sex: Male
  Weight: 88.44 kg

DRUGS (2)
  1. JANUMET [Suspect]
     Indication: TYPE 2 DIABETES MELLITUS
     Dosage: UNK
     Route: 048
     Dates: start: 2011, end: 201307
  2. METFORMIN [Concomitant]

REACTIONS (2)
  - Weight decreased [Unknown]
  - Decreased appetite [Unknown]
